FAERS Safety Report 6662923-2 (Version None)
Quarter: 2010Q2

REPORT INFORMATION
  Report Type: 
  Country: None (occurrence: None)
  Receive Date: 20100401
  Receipt Date: 20100323
  Transmission Date: 20101027
  Serious: Yes (Hospitalization)
  Sender: FDA-Public Use
  Company Number: FR-JNJFOC-20100306571

PATIENT
  Age: 83 Year
  Sex: Female

DRUGS (4)
  1. TAVANIC [Suspect]
     Indication: BRONCHOPNEUMONIA
     Route: 048
  2. CORDARONE [Interacting]
     Indication: ATRIAL FIBRILLATION
     Route: 042
  3. CORDARONE [Interacting]
     Route: 048
  4. PREVISCAN (FLUINDIONE) [Interacting]
     Indication: SUBENDOCARDIAL ISCHAEMIA
     Route: 048

REACTIONS (4)
  - DRUG INTERACTION [None]
  - HAEMORRHAGIC ANAEMIA [None]
  - INTERNATIONAL NORMALISED RATIO INCREASED [None]
  - MUSCLE HAEMORRHAGE [None]
